FAERS Safety Report 5497144-2 (Version None)
Quarter: 2007Q4

REPORT INFORMATION
  Report Type: 
  Country: None (occurrence: None)
  Receive Date: 20071025
  Receipt Date: 20060927
  Transmission Date: 20080405
  Serious: No
  Sender: FDA-Public Use
  Company Number: A0442993A

PATIENT
  Age: 78 Year
  Sex: Female

DRUGS (7)
  1. ADVAIR DISKUS 100/50 [Suspect]
     Indication: ASTHMA
     Dosage: 1PUFF PER DAY
     Route: 055
     Dates: start: 20030501
  2. ALBUTEROL [Suspect]
     Indication: ASTHMA
     Route: 055
     Dates: start: 20060101
  3. ACTONEL [Concomitant]
  4. VENTOLIN HFA [Concomitant]
  5. CATAPRES [Concomitant]
  6. COZAAR [Concomitant]
  7. PROVENTIL [Concomitant]

REACTIONS (2)
  - DRUG INEFFECTIVE [None]
  - DYSPHONIA [None]
